FAERS Safety Report 7321481-X (Version None)
Quarter: 2011Q1

REPORT INFORMATION
  Report Type: 
  Country: None (occurrence: None)
  Receive Date: 20110228
  Receipt Date: 20100622
  Transmission Date: 20110831
  Serious: Yes (Other)
  Sender: FDA-Public Use
  Company Number: US-PFIZER INC-2010065070

PATIENT
  Sex: Male
  Weight: 43 kg

DRUGS (1)
  1. GEODON [Suspect]
     Indication: ATTENTION DEFICIT/HYPERACTIVITY DISORDER
     Dosage: 40 MG, 1X/DAY
     Route: 048
     Dates: start: 20100301, end: 20100501

REACTIONS (1)
  - ELECTROCARDIOGRAM QT PROLONGED [None]
